FAERS Safety Report 8590457 (Version 3)
Quarter: 2012Q4

REPORT INFORMATION
  Report Type: 
  Country: US (occurrence: US)
  Receive Date: 20120601
  Receipt Date: 20121011
  Transmission Date: 20130627
  Serious: Yes (Hospitalization, Other)
  Sender: FDA-Public Use
  Company Number: US-COVIDIEN/TYCO HEALTHCARE/MALLINCKRODT-T201202426

PATIENT
  Age: 39 Year
  Sex: Female
  Weight: 118.82 kg

DRUGS (19)
  1. OPTIMARK [Suspect]
     Indication: NUCLEAR MAGNETIC RESONANCE IMAGING BRAIN
     Dosage: 15 ml, single
     Route: 042
     Dates: start: 20050831, end: 20050831
  2. GADOLINIUM [Suspect]
     Indication: ANGIOGRAM
     Dosage: UNK, single
     Route: 042
     Dates: start: 20040206, end: 20040206
  3. ACCUPRIL [Concomitant]
     Dosage: 40 mg, bid
  4. ATENOLOL [Concomitant]
     Dosage: 50 mg, qd
  5. EPOGEN [Concomitant]
     Indication: ANAEMIA
     Dosage: UNK
     Dates: start: 20020822
  6. DIOVAN [Concomitant]
     Dosage: 160 mg, bid
  7. ZOSYN [Concomitant]
     Dosage: 50 mg, q 8 hours
     Route: 042
  8. CALCITRIOL [Concomitant]
  9. RENAGEL                            /01459901/ [Concomitant]
     Dosage: two - 800 mg, tid
  10. NEPHRO-VITE                        /01801401/ [Concomitant]
     Dosage: one tab, qd
  11. LASIX                              /00032601/ [Concomitant]
     Dosage: 80mg/8ml, q 12 hours
     Route: 042
  12. HYDRALAZINE [Concomitant]
     Dosage: 25 mg, q 4 hours, prn
  13. AZITHROMYCIN [Concomitant]
     Dosage: 500 mg, UNK
  14. TYLENOL WITH CODEIN #3 [Concomitant]
     Dosage: 2-325 mg, prn
  15. LORAZEPAM [Concomitant]
     Dosage: 1 mg/0.5 ml, prn
  16. GUAIFENESIN DM [Concomitant]
     Dosage: UNK, prn
  17. ALBUTEROL                          /00139501/ [Concomitant]
     Dosage: UNK
  18. ATROVENT [Concomitant]
     Dosage: UNK
  19. PROPOXYPHENE [Concomitant]
     Dosage: 100/650 mg, prn

REACTIONS (73)
  - Nephrogenic systemic fibrosis [Unknown]
  - Deep vein thrombosis [Recovered/Resolved]
  - Pulmonary embolism [Recovering/Resolving]
  - Sepsis [Unknown]
  - Hyperparathyroidism [Unknown]
  - Azotaemia [Unknown]
  - Abscess limb [Unknown]
  - Pulmonary oedema [Recovering/Resolving]
  - Renal failure chronic [Unknown]
  - Septic encephalopathy [Unknown]
  - Coagulopathy [Unknown]
  - Drug interaction [Unknown]
  - Pneumonia bacterial [Unknown]
  - Graft infection [Unknown]
  - Cardiac failure acute [Unknown]
  - Respiratory distress [Unknown]
  - Bronchopneumonia [Unknown]
  - Haemoptysis [Unknown]
  - Diverticulum intestinal haemorrhagic [Unknown]
  - Gastroenteritis [Unknown]
  - Tracheobronchitis [Unknown]
  - Asthma [Unknown]
  - Decubitus ulcer [Unknown]
  - Hypertensive heart disease [Unknown]
  - Pericarditis [Unknown]
  - Atrial fibrillation [Unknown]
  - Colon adenoma [Unknown]
  - Graft thrombosis [Unknown]
  - Jugular vein thrombosis [Unknown]
  - Fluid overload [Unknown]
  - Systemic sclerosis [Unknown]
  - Superior vena cava syndrome [Unknown]
  - Syncope [Unknown]
  - Wheezing [Unknown]
  - Dyspnoea [Unknown]
  - Erosive oesophagitis [Unknown]
  - Duodenitis [Unknown]
  - Hypothyroidism [Unknown]
  - Dermatitis [Unknown]
  - Gastrooesophageal reflux disease [Unknown]
  - Pleuritic pain [Unknown]
  - Dyslipidaemia [Unknown]
  - Migraine [Unknown]
  - Upper respiratory tract infection [Unknown]
  - Breast calcifications [Unknown]
  - Sinus disorder [Unknown]
  - Hyperphosphataemia [Unknown]
  - Blood bilirubin decreased [Unknown]
  - Carpal tunnel syndrome [Unknown]
  - Iron deficiency anaemia [Unknown]
  - Electrocardiogram QT prolonged [Unknown]
  - Electrocardiogram T wave abnormal [Unknown]
  - Haemorrhoids [Unknown]
  - Hypokalaemia [Unknown]
  - Fall [Unknown]
  - Gastritis [Unknown]
  - Pericardial rub [Unknown]
  - Pain [Not Recovered/Not Resolved]
  - Insomnia [Unknown]
  - Gene mutation identification test positive [Unknown]
  - Lymphadenopathy [Unknown]
  - Nodule [Unknown]
  - Protein C deficiency [Unknown]
  - Neuropathy peripheral [Unknown]
  - Oedema peripheral [Unknown]
  - Pain in extremity [Unknown]
  - Tachycardia [Unknown]
  - Myalgia [Unknown]
  - Diarrhoea [Unknown]
  - Hypotension [Unknown]
  - Hypertension [Unknown]
  - Body temperature increased [Unknown]
  - Fatigue [Unknown]
